FAERS Safety Report 5985121-4 (Version None)
Quarter: 2008Q4

REPORT INFORMATION
  Report Type: 
  Country: None (occurrence: None)
  Receive Date: 20081208
  Receipt Date: 20080520
  Transmission Date: 20090506
  Serious: Yes (Other)
  Sender: FDA-Public Use
  Company Number: US-AMGEN-QUU279276

PATIENT
  Sex: Male
  Weight: 79.5 kg

DRUGS (3)
  1. ENBREL [Suspect]
     Indication: ANKYLOSING SPONDYLITIS
     Route: 058
     Dates: start: 20030115, end: 20080512
  2. PRILOSEC [Concomitant]
  3. DARVON [Concomitant]

REACTIONS (1)
  - SARCOIDOSIS [None]
